FAERS Safety Report 6208456-9 (Version None)
Quarter: 2009Q2

REPORT INFORMATION
  Report Type: 
  Country: None (occurrence: None)
  Receive Date: 20090529
  Receipt Date: 20090518
  Transmission Date: 20091009
  Serious: Yes (Hospitalization, Other)
  Sender: FDA-Public Use
  Company Number: US-JNJFOC-20090304019

PATIENT
  Sex: Female

DRUGS (4)
  1. REMICADE [Suspect]
     Indication: DRUG USE FOR UNKNOWN INDICATION
     Route: 042
  2. HERCEPTIN [Interacting]
     Indication: BREAST CANCER
  3. TAXOTERE [Interacting]
     Indication: BREAST CANCER
  4. CARBOPLATIN [Interacting]
     Indication: BREAST CANCER

REACTIONS (3)
  - BREAST CANCER [None]
  - DRUG INTERACTION [None]
  - RED BLOOD CELL COUNT DECREASED [None]
